APPROVED DRUG PRODUCT: THEOPHYLLINE AND DEXTROSE 5% IN PLASTIC CONTAINER
Active Ingredient: THEOPHYLLINE
Strength: 320MG/100ML
Dosage Form/Route: INJECTABLE;INJECTION
Application: N018649 | Product #006
Applicant: BAXTER HEALTHCARE CORP
Approved: Nov 13, 1985 | RLD: No | RS: No | Type: DISCN